FAERS Safety Report 14007744 (Version 1)
Quarter: 2017Q3

REPORT INFORMATION
  Report Type: Spontaneous
  Country: GB (occurrence: GB)
  Receive Date: 20170925
  Receipt Date: 20170925
  Transmission Date: 20171128
  Serious: Yes (Hospitalization)
  Sender: FDA-Public Use
  Company Number: GB-BIOGEN-2017BI00461601

PATIENT
  Sex: Male

DRUGS (2)
  1. TECFIDERA [Suspect]
     Active Substance: DIMETHYL FUMARATE
     Indication: MULTIPLE SCLEROSIS
     Dosage: INITIAL DOSE
     Route: 048
  2. TECFIDERA [Suspect]
     Active Substance: DIMETHYL FUMARATE
     Route: 065

REACTIONS (8)
  - Pyrexia [Unknown]
  - Drug eruption [Unknown]
  - Urticaria [Unknown]
  - Malaise [Unknown]
  - Underdose [Unknown]
  - Tachycardia [Unknown]
  - Enuresis [Unknown]
  - Drug administered at inappropriate site [Unknown]
